FAERS Safety Report 22167984 (Version 2)
Quarter: 2023Q2

REPORT INFORMATION
  Report Type: Spontaneous
  Country: US (occurrence: US)
  Receive Date: 20230403
  Receipt Date: 20230405
  Transmission Date: 20230722
  Serious: No
  Sender: FDA-Public Use
  Company Number: US-SA-SAC20230331000220

PATIENT
  Age: 76 Year
  Sex: Female

DRUGS (1)
  1. KEVZARA [Suspect]
     Active Substance: SARILUMAB
     Indication: Rheumatoid arthritis
     Dosage: 200 MG, QOW
     Route: 058
     Dates: start: 202303, end: 2023

REACTIONS (4)
  - Contusion [Unknown]
  - Gastrointestinal disorder [Unknown]
  - Rhinorrhoea [Unknown]
  - Injury associated with device [Unknown]

NARRATIVE: CASE EVENT DATE: 20230101
